FAERS Safety Report 25701489 (Version 1)
Quarter: 2025Q3

REPORT INFORMATION
  Report Type: Spontaneous
  Country: US (occurrence: US)
  Receive Date: 20250819
  Receipt Date: 20250819
  Transmission Date: 20251021
  Serious: No
  Sender: IMPEL NEUROPHARMA
  Company Number: US-IMPEL-2025-US-022756

PATIENT
  Age: 35 Year
  Sex: Female
  Weight: 54.43 kg

DRUGS (4)
  1. DULOXETINE [Concomitant]
     Active Substance: DULOXETINE
  2. MEMANTINE [Concomitant]
     Active Substance: MEMANTINE
  3. LINZESS [Concomitant]
     Active Substance: LINACLOTIDE
  4. TRUDHESA [Suspect]
     Active Substance: DIHYDROERGOTAMINE MESYLATE
     Indication: Migraine
     Route: 045
     Dates: start: 202412

REACTIONS (3)
  - Nausea [Recovering/Resolving]
  - Nasal congestion [Unknown]
  - Expired product administered [Recovered/Resolved]

NARRATIVE: CASE EVENT DATE: 20250506
